FAERS Safety Report 22621353 (Version 1)
Quarter: 2023Q2

REPORT INFORMATION
  Report Type: Spontaneous
  Country: US (occurrence: None)
  Receive Date: 20230616
  Receipt Date: 20230616
  Transmission Date: 20230721
  Serious: Yes (Other)
  Sender: FDA-Public Use
  Company Number: None

PATIENT
  Age: 35 Year
  Sex: Female
  Weight: 79.38 kg

DRUGS (1)
  1. PARAGARD T 380A [Suspect]
     Active Substance: COPPER

REACTIONS (5)
  - Pelvic pain [None]
  - Lethargy [None]
  - Heavy menstrual bleeding [None]
  - Hormone level abnormal [None]
  - Feeling abnormal [None]

NARRATIVE: CASE EVENT DATE: 20230613
